FAERS Safety Report 6840979-1 (Version None)
Quarter: 2010Q3

REPORT INFORMATION
  Report Type: 
  Country: None (occurrence: None)
  Receive Date: 20100714
  Receipt Date: 20070622
  Transmission Date: 20110219
  Serious: No
  Sender: FDA-Public Use
  Company Number: US-PFIZER INC-2007052951

PATIENT
  Sex: Male
  Weight: 80.454 kg

DRUGS (9)
  1. CHANTIX [Suspect]
     Indication: SMOKING CESSATION THERAPY
     Dates: start: 20070604
  2. CRESTOR [Concomitant]
  3. PRINZIDE [Concomitant]
  4. ACETYLSALICYLIC ACID [Concomitant]
  5. LEXAPRO [Concomitant]
  6. SEROQUEL [Concomitant]
  7. VICODIN ES [Concomitant]
  8. FLEXERIL [Concomitant]
  9. CENTRUM SILVER [Concomitant]

REACTIONS (3)
  - ABNORMAL DREAMS [None]
  - CARDIAC FLUTTER [None]
  - STRESS [None]
